FAERS Safety Report 9749389 (Version 1)
Quarter: 2013Q4

REPORT INFORMATION
  Report Type: Spontaneous
  Country: US (occurrence: None)
  Receive Date: 20131211
  Receipt Date: 20131211
  Transmission Date: 20140711
  Serious: Yes (Hospitalization)
  Sender: FDA-Public Use
  Company Number: None

PATIENT
  Age: 58 Year
  Sex: Male
  Weight: 73.5 kg

DRUGS (4)
  1. ABRAXANE [Suspect]
     Dosage: 192 MG, WEEK 1/ WEEK 2
     Route: 042
  2. CARBOPLATIN [Suspect]
     Route: 042
  3. CHEMOTHERAPY [Concomitant]
  4. ABRAXANE [Concomitant]

REACTIONS (4)
  - Diarrhoea [None]
  - Pyrexia [None]
  - Anaemia [None]
  - Neutropenia [None]
